FAERS Safety Report 10365762 (Version 1)
Quarter: 2014Q1

REPORT INFORMATION
  Report Type: Spontaneous
  Country: US (occurrence: None)
  Receive Date: 20140306
  Receipt Date: 20140306
  Transmission Date: 20141002
  Serious: Yes (Hospitalization)
  Sender: FDA-Public Use
  Company Number: 163-21880-13030307

PATIENT
  Age: 73 Year
  Sex: Female

DRUGS (12)
  1. REVLIMID (LENALIDOMIDE) (5 MILLIGRAM, CAPSULES) [Suspect]
     Indication: PLASMA CELL MYELOMA
     Dosage: 5 MG, 14 IN 14 D, PO
     Route: 048
     Dates: start: 201212
  2. CYMBALTA [Concomitant]
  3. LYRICA (PREGABALIN) (UNKNOWN) [Concomitant]
  4. CELEBREX (CELECOXIB) (UNKNOWN) [Concomitant]
  5. LASIX (FUROSEMIDE) (UNKNOWN) [Concomitant]
  6. PREVACID (LANSOPRAZOLE) (UNKNOWN) [Concomitant]
  7. METFORMIN (METFORMIN) (UNKNOWN) [Concomitant]
  8. VIT B (VITAMIN B) (INJECTION) [Concomitant]
  9. LIPITOR (ATORVASTATIN) (UNKNOWN) [Concomitant]
  10. OXYCONTIN (OXYCODONE HYDROCHLORIDE) (UNKNOWN) [Concomitant]
  11. EVOXAC (CEVIMELINE HYDROCHLORIDE) (UNKNOWN) [Concomitant]
  12. RECLAST (ZOLEDRONIC ACID) (UNKNOWN) [Concomitant]

REACTIONS (2)
  - Confusional state [None]
  - Dehydration [None]
